FAERS Safety Report 25947147 (Version 1)
Quarter: 2025Q4

REPORT INFORMATION
  Report Type: Spontaneous
  Country: EU (occurrence: EU)
  Receive Date: 20251022
  Receipt Date: 20251022
  Transmission Date: 20260117
  Serious: Yes (Hospitalization)
  Sender: RANBAXY
  Company Number: EU-AFSSAPS-PP2025000756

PATIENT
  Age: 36 Year
  Sex: Male
  Weight: 69 kg

DRUGS (1)
  1. OMEPRAZOLE [Suspect]
     Active Substance: OMEPRAZOLE
     Indication: Gastrooesophageal reflux disease
     Dosage: 1FP
     Route: 048
     Dates: start: 202505

REACTIONS (2)
  - Urticaria [Not Recovered/Not Resolved]
  - Eosinophil count [Not Recovered/Not Resolved]

NARRATIVE: CASE EVENT DATE: 20250524
